FAERS Safety Report 9558601 (Version 1)
Quarter: 2013Q3

REPORT INFORMATION
  Report Type: Spontaneous
  Country: US (occurrence: US)
  Receive Date: 20130926
  Receipt Date: 20130926
  Transmission Date: 20140515
  Serious: No
  Sender: FDA-Public Use
  Company Number: US-BIOGENIDEC-2013BI044532

PATIENT
  Age: 30 Year
  Sex: Male

DRUGS (4)
  1. TECFIDERA [Suspect]
     Indication: PRODUCT USED FOR UNKNOWN INDICATION
  2. METOPROLOL SUCCINATE ER [Concomitant]
  3. LEVOTHYROXINE SODIUM [Concomitant]
  4. PROMETHAZINE [Concomitant]

REACTIONS (2)
  - Flushing [Unknown]
  - Burning sensation [Unknown]
